FAERS Safety Report 10905167 (Version 1)
Quarter: 2015Q1

REPORT INFORMATION
  Report Type: Report from Study
  Country: US (occurrence: US)
  Receive Date: 20150311
  Receipt Date: 20150311
  Transmission Date: 20150721
  Serious: Yes (Death)
  Sender: FDA-Public Use
  Company Number: US-SA-2015SA029654

PATIENT
  Age: 76 Year
  Sex: Male

DRUGS (1)
  1. RENVELA [Suspect]
     Active Substance: SEVELAMER CARBONATE
     Indication: CHRONIC KIDNEY DISEASE
     Dosage: MOST RECENT DOSE WAS RENVELA 800 MG THREE TABLETS TIDCC
     Route: 048
     Dates: start: 20120812, end: 20150225

REACTIONS (1)
  - Death [Fatal]

NARRATIVE: CASE EVENT DATE: 20150305
